FAERS Safety Report 20700336 (Version 1)
Quarter: 2022Q2

REPORT INFORMATION
  Report Type: Spontaneous
  Country: US (occurrence: US)
  Receive Date: 20220412
  Receipt Date: 20220412
  Transmission Date: 20220720
  Serious: Yes (Other)
  Sender: FDA-Public Use
  Company Number: US-PFIZER INC-202200533239

PATIENT
  Age: 66 Year
  Sex: Female

DRUGS (1)
  1. EUCRISA [Suspect]
     Active Substance: CRISABOROLE
     Dosage: APPLY AFFECTED AREAS FACE NECK 3X/DAY

REACTIONS (2)
  - Hysterectomy [Unknown]
  - Off label use [Unknown]
